FAERS Safety Report 9142590 (Version 1)
Quarter: 2013Q1

REPORT INFORMATION
  Report Type: Spontaneous
  Country: DE (occurrence: DE)
  Receive Date: 20130306
  Receipt Date: 20130306
  Transmission Date: 20140127
  Serious: Yes (Death)
  Sender: FDA-Public Use
  Company Number: DE-AMGEN-DEUSP2013014329

PATIENT
  Sex: Male

DRUGS (4)
  1. ENBREL [Suspect]
     Indication: ANKYLOSING SPONDYLITIS
     Dosage: 25 MG, 2X/WEEK
     Dates: start: 20040601
  2. METEX                              /00082702/ [Concomitant]
     Dosage: 20 MG, UNK
  3. PREDNISOLON                        /00016201/ [Concomitant]
     Dosage: 4 MG, UNK
  4. QUENSYL [Concomitant]
     Dosage: UNK

REACTIONS (1)
  - Death [Fatal]
